FAERS Safety Report 7204891-0 (Version None)
Quarter: 2010Q4

REPORT INFORMATION
  Report Type: 
  Country: None (occurrence: None)
  Receive Date: 20101230
  Receipt Date: 20101222
  Transmission Date: 20110411
  Serious: Yes (Hospitalization)
  Sender: FDA-Public Use
  Company Number: US-JNJFOC-20101206431

PATIENT
  Sex: Male
  Weight: 89.81 kg

DRUGS (8)
  1. INFLIXIMAB, RECOMBINANT [Suspect]
     Indication: CROHN'S DISEASE
     Route: 042
  2. INFLIXIMAB, RECOMBINANT [Suspect]
     Route: 042
  3. COUMADIN [Concomitant]
     Indication: DEEP VEIN THROMBOSIS
  4. ANTIHISTAMINES [Concomitant]
     Indication: PREMEDICATION
  5. ACETAMINOPHEN [Concomitant]
     Indication: PREMEDICATION
  6. STEROIDS NOS [Concomitant]
     Indication: PREMEDICATION
  7. STEROIDS NOS [Concomitant]
  8. CORTICOSTEROIDS [Concomitant]

REACTIONS (2)
  - ILEAL ULCER [None]
  - LOWER GASTROINTESTINAL HAEMORRHAGE [None]
